FAERS Safety Report 21438614 (Version 1)
Quarter: 2022Q4

REPORT INFORMATION
  Report Type: Spontaneous
  Country: DE (occurrence: DE)
  Receive Date: 20221011
  Receipt Date: 20221011
  Transmission Date: 20230113
  Serious: No
  Sender: FDA-Public Use
  Company Number: DE-ALKEM LABORATORIES LIMITED-DE-ALKEM-2022-08768

PATIENT
  Age: 70 Year
  Sex: Male

DRUGS (4)
  1. IBUPROFEN [Suspect]
     Active Substance: IBUPROFEN
     Indication: Contusion
     Dosage: 3 DOSAGE FORM, QD (GEL)
     Route: 065
     Dates: start: 202205
  2. IBUPROFEN [Suspect]
     Active Substance: IBUPROFEN
     Dosage: UNK
     Route: 065
     Dates: start: 202205
  3. APIXABAN [Concomitant]
     Active Substance: APIXABAN
     Indication: Product used for unknown indication
     Route: 065
  4. TRAUMAPLANT [Concomitant]
     Indication: Contusion
     Dosage: 3 DOSAGE FORM, QD
     Route: 065
     Dates: start: 202205

REACTIONS (4)
  - Dyspnoea [Unknown]
  - Asthma [Unknown]
  - Dyspnoea exertional [Unknown]
  - Burning sensation [Unknown]

NARRATIVE: CASE EVENT DATE: 20220601
